FAERS Safety Report 6880690-4 (Version None)
Quarter: 2010Q3

REPORT INFORMATION
  Report Type: 
  Country: None (occurrence: None)
  Receive Date: 20100728
  Receipt Date: 20100716
  Transmission Date: 20110219
  Serious: Yes (Other)
  Sender: FDA-Public Use
  Company Number: BR-BAYER-201015494LA

PATIENT
  Sex: Female
  Weight: 73 kg

DRUGS (2)
  1. MIRENA [Suspect]
     Indication: PRODUCT USED FOR UNKNOWN INDICATION
     Dosage: FREQUENCY: CONTINUOUS
     Route: 015
     Dates: start: 20061201
  2. LEVOTHYROXINE SODIUM [Concomitant]
     Indication: HYPOTHYROIDISM
     Dates: start: 20090101

REACTIONS (2)
  - HYPOTHYROIDISM [None]
  - THYROID CANCER [None]
